FAERS Safety Report 4527519-7 (Version None)
Quarter: 2004Q4

REPORT INFORMATION
  Report Type: 
  Country: None (occurrence: None)
  Receive Date: 20041130
  Receipt Date: 20040922
  Transmission Date: 20050328
  Serious: No
  Sender: FDA-Public Use
  Company Number: WAES 0409USA01957

PATIENT
  Age: 68 Year
  Sex: Female
  Weight: 63.9572 kg

DRUGS (1)
  1. ZETIA [Suspect]
     Indication: BLOOD CHOLESTEROL INCREASED
     Dosage: 10 MG/ DAILY/ PO
     Route: 048
     Dates: start: 20040916, end: 20040916

REACTIONS (1)
  - TONGUE DISORDER [None]
